FAERS Safety Report 7612914-X (Version None)
Quarter: 2011Q3

REPORT INFORMATION
  Report Type: 
  Country: None (occurrence: None)
  Receive Date: 20110708
  Receipt Date: 20110624
  Transmission Date: 20111222
  Serious: Yes (Hospitalization)
  Sender: FDA-Public Use
  Company Number: TPA2011A03636

PATIENT
  Age: 80 Year
  Sex: Male

DRUGS (9)
  1. ARCOXIA [Concomitant]
  2. ASPIRIN [Concomitant]
  3. ADENURIC (FEBUXOSTAT) [Suspect]
     Indication: GOUT
     Dosage: 120 MG (120 MG, 1 IN 1 D) ORAL
     Route: 048
     Dates: start: 20110228, end: 20110526
  4. MILPAR (MAGNESIUM HYDROXIDE, PARAFFIN, LIQUID) [Concomitant]
  5. DIAZEPAM [Concomitant]
  6. COMBIVENT (SALBUTAMOL, IPRATROPIUM BROMIDE) [Concomitant]
  7. FUROSEMIDE [Concomitant]
  8. PERINDOPRIL ERBUMINE [Concomitant]
  9. ESOMEPRAZOLE (ESOMEPRAZOLE) [Concomitant]

REACTIONS (1)
  - PLEURAL EFFUSION [None]
